FAERS Safety Report 10590188 (Version 1)
Quarter: 2014Q4

REPORT INFORMATION
  Report Type: Spontaneous
  Country: US (occurrence: None)
  Receive Date: 20141117
  Receipt Date: 20141117
  Transmission Date: 20150529
  Serious: Yes (Life-Threatening, Disabling, Other)
  Sender: FDA-Public Use
  Company Number: None

PATIENT
  Age: 26 Year
  Sex: Female
  Weight: 86.18 kg

DRUGS (1)
  1. EFFEXOR [Suspect]
     Active Substance: VENLAFAXINE HYDROCHLORIDE
     Indication: DEPRESSION
     Dosage: PILL
     Route: 048
     Dates: start: 20091101, end: 20141115

REACTIONS (12)
  - Pain [None]
  - Paraesthesia [None]
  - Lethargy [None]
  - Feeling abnormal [None]
  - Drug withdrawal syndrome [None]
  - Arthralgia [None]
  - Hallucinations, mixed [None]
  - Alopecia [None]
  - Depression [None]
  - Serotonin syndrome [None]
  - Cognitive disorder [None]
  - Myalgia [None]

NARRATIVE: CASE EVENT DATE: 20141115
